FAERS Safety Report 15347375 (Version 1)
Quarter: 2018Q3

REPORT INFORMATION
  Report Type: Spontaneous
  Country: US (occurrence: US)
  Receive Date: 20180904
  Receipt Date: 20180904
  Transmission Date: 20181010
  Serious: Yes (Other)
  Sender: FDA-Public Use
  Company Number: US-COVIS PHARMA B.V.-2018COV03745

PATIENT
  Sex: Male
  Weight: 95.24 kg

DRUGS (16)
  1. SYMBICORT [Suspect]
     Active Substance: BUDESONIDE\FORMOTEROL FUMARATE DIHYDRATE
     Indication: ASTHMA
     Dosage: 2 PUFFS, 2X/DAY
     Route: 055
     Dates: start: 201310
  2. PROAIR HFA [Concomitant]
     Active Substance: ALBUTEROL SULFATE
     Dosage: 2 PUFFS, EVERY 6 HOURS AS NEEDED
     Route: 055
     Dates: start: 2017
  3. VITAMIN C [Concomitant]
     Active Substance: ASCORBIC ACID
     Dosage: 500 MG, 1X/DAY
     Route: 048
  4. ALLERGY RELIEF MEDICINE [Concomitant]
     Dosage: 10 MG, 1X/DAY
     Route: 048
  5. ALBUTEROL. [Concomitant]
     Active Substance: ALBUTEROL
  6. CARBIDOPA AND LEVODOPA [Suspect]
     Active Substance: CARBIDOPA\LEVODOPA
     Indication: PARKINSON^S DISEASE
     Dosage: 2 DOSAGE UNITS, 5X/DAY
     Route: 048
     Dates: start: 2013
  7. ROPINIROLE HYDROCHLORIDE. [Suspect]
     Active Substance: ROPINIROLE HYDROCHLORIDE
     Indication: PARKINSON^S DISEASE
     Dosage: 0.25 MG, 3X/DAY
     Route: 048
     Dates: start: 2013
  8. VITAMIN D [Concomitant]
     Active Substance: CHOLECALCIFEROL
     Dosage: 2000 IU, 1X/DAY
     Route: 048
  9. AMLODIPINE [Concomitant]
     Active Substance: AMLODIPINE BESYLATE
     Dosage: 5 MG, 1X/DAY
     Route: 048
  10. METOPROLOL. [Suspect]
     Active Substance: METOPROLOL
     Indication: HYPERTENSION
     Dosage: 50 MG, 2X/DAY
     Route: 048
     Dates: start: 2008
  11. ATORVASTATIN [Concomitant]
     Active Substance: ATORVASTATIN
     Dosage: 20 MG, 1X/DAY
     Route: 048
  12. ASPIRIN. [Concomitant]
     Active Substance: ASPIRIN
     Dosage: 81 MG, 1X/DAY
     Route: 048
  13. MULTIVITAMINS [Concomitant]
     Active Substance: VITAMINS
     Route: 048
  14. OMEPRAZOLE MAGNESIUM. [Suspect]
     Active Substance: OMEPRAZOLE MAGNESIUM
     Indication: ABDOMINAL DISCOMFORT
     Dosage: 20 MG, 1X/DAY
     Route: 048
     Dates: start: 2013
  15. ISOSORBIDE. [Suspect]
     Active Substance: ISOSORBIDE
     Indication: ARTERIAL OCCLUSIVE DISEASE
     Dosage: 60 MG, 2X/DAY
     Route: 048
  16. COL?RITE [Concomitant]
     Active Substance: DOCUSATE SODIUM
     Dosage: 250 MG, 1X/DAY
     Route: 048

REACTIONS (15)
  - Bowel movement irregularity [Unknown]
  - Coronary artery occlusion [Unknown]
  - Pain [Unknown]
  - Cardiac disorder [Unknown]
  - Grip strength decreased [Unknown]
  - Asthma [Unknown]
  - Gait disturbance [Unknown]
  - Dyspnoea [Unknown]
  - Irritability [Unknown]
  - Abdominal discomfort [Unknown]
  - Constipation [Unknown]
  - Body height decreased [Unknown]
  - Cough [Unknown]
  - Myalgia [Unknown]
  - Parkinson^s disease [Unknown]
